FAERS Safety Report 4422559-0 (Version None)
Quarter: 2004Q3

REPORT INFORMATION
  Report Type: 
  Country: None (occurrence: None)
  Receive Date: 20040810
  Receipt Date: 20040730
  Transmission Date: 20050211
  Serious: Yes (Other)
  Sender: FDA-Public Use
  Company Number: PHFR2004GB03026

PATIENT

DRUGS (2)
  1. DIOVAN [Suspect]
     Indication: HYPERTENSION
     Dosage: 160MG/DAY
     Route: 065
  2. DIOVAN [Suspect]
     Dosage: 80MG/DAY

REACTIONS (1)
  - VENTRICULAR EXTRASYSTOLES [None]
